FAERS Safety Report 13305606 (Version 2)
Quarter: 2017Q1

REPORT INFORMATION
  Report Type: Spontaneous
  Country: PE (occurrence: PE)
  Receive Date: 20170308
  Receipt Date: 20170317
  Transmission Date: 20170428
  Serious: Yes (Other)
  Sender: FDA-Public Use
  Company Number: PE-SA-2017SA035126

PATIENT
  Age: 40 Year
  Sex: Male
  Weight: 61.5 kg

DRUGS (5)
  1. FABRAZYME [Suspect]
     Active Substance: AGALSIDASE BETA
     Indication: FABRY^S DISEASE
     Route: 042
     Dates: start: 20090821
  2. GABAPENTIN. [Concomitant]
     Active Substance: GABAPENTIN
     Indication: NEURALGIA
     Route: 048
  3. CARBAMAZEPINE. [Concomitant]
     Active Substance: CARBAMAZEPINE
     Indication: NEURALGIA
     Route: 048
     Dates: start: 2005
  4. LYRICA [Concomitant]
     Active Substance: PREGABALIN
     Indication: NEURALGIA
     Route: 048
  5. CARBAMAZEPINE. [Concomitant]
     Active Substance: CARBAMAZEPINE
     Indication: NEURALGIA
     Route: 048

REACTIONS (10)
  - Soft tissue injury [Recovering/Resolving]
  - Hyperkalaemia [Recovered/Resolved]
  - Inflammation [Unknown]
  - Peripheral swelling [Recovering/Resolving]
  - Blood phosphorus increased [Not Recovered/Not Resolved]
  - Renal failure [Unknown]
  - Gait disturbance [Unknown]
  - Condition aggravated [Unknown]
  - Haemoglobin decreased [Not Recovered/Not Resolved]
  - Pain [Unknown]

NARRATIVE: CASE EVENT DATE: 201702
